FAERS Safety Report 9954879 (Version 1)
Quarter: 2014Q1

REPORT INFORMATION
  Report Type: Spontaneous
  Country: MX (occurrence: MX)
  Receive Date: 20140304
  Receipt Date: 20140304
  Transmission Date: 20141002
  Serious: Yes (Other)
  Sender: FDA-Public Use
  Company Number: PHHY2014MX026038

PATIENT
  Age: 77 Year
  Sex: Female
  Weight: 74 kg

DRUGS (4)
  1. ACLASTA [Suspect]
     Indication: OSTEOPOROSIS
     Dosage: 5 MG/100ML, UNK
     Route: 042
     Dates: start: 20130611
  2. PANKREOFLAT [Concomitant]
     Indication: COLITIS
     Dosage: 3 DF, DAILY
     Route: 048
  3. MELLITRON [Concomitant]
     Indication: DIABETES MELLITUS
     Dosage: 3 DF, DAILY
     Route: 048
  4. LYRICA [Concomitant]
     Indication: PAIN
     Dosage: 1 DF, DAILY
     Route: 048
     Dates: start: 2006

REACTIONS (8)
  - Rheumatoid arthritis [Not Recovered/Not Resolved]
  - Arthralgia [Not Recovered/Not Resolved]
  - Anaemia [Recovered/Resolved]
  - Dysbacteriosis [Unknown]
  - Gastritis [Recovered/Resolved]
  - Musculoskeletal pain [Not Recovered/Not Resolved]
  - Bone pain [Not Recovered/Not Resolved]
  - Pain in extremity [Not Recovered/Not Resolved]
